FAERS Safety Report 7511922-7 (Version None)
Quarter: 2011Q2

REPORT INFORMATION
  Report Type: 
  Country: None (occurrence: None)
  Receive Date: 20110520
  Receipt Date: 20110510
  Transmission Date: 20111010
  Serious: Yes (Life-Threatening, Disabling)
  Sender: FDA-Public Use
  Company Number: WAES 0112USA02604

PATIENT
  Age: 24 Year
  Sex: Male

DRUGS (22)
  1. EFAVIRENZ [Suspect]
     Indication: HIV INFECTION
     Dosage: 600 MG/DAILY, PO; 600 MG/DAILY, PO
     Route: 048
     Dates: start: 20000925, end: 20001002
  2. EFAVIRENZ [Suspect]
     Indication: HIV INFECTION
     Dosage: 600 MG/DAILY, PO; 600 MG/DAILY, PO
     Route: 048
     Dates: start: 20000724, end: 20000725
  3. VIDEX [Suspect]
     Indication: HIV INFECTION
     Dosage: 125 MG/BID, PO; 300 MG/DAILY, PO
     Route: 048
     Dates: start: 19941219, end: 19970307
  4. VIDEX [Suspect]
     Indication: HIV INFECTION
     Dosage: 125 MG/BID, PO; 300 MG/DAILY, PO
     Route: 048
     Dates: start: 19970307, end: 20010721
  5. ANTIHEMOPHILIC FACTOR (HUMAN) [Concomitant]
  6. CRIXIVAN [Suspect]
     Indication: HIV INFECTION
     Dosage: 800 MG/DAILY, PO
     Route: 048
     Dates: start: 20000318, end: 20000524
  7. ZERIT [Suspect]
     Indication: HIV INFECTION
     Dosage: 30 MG/BID, PO; 40 MG/BID, PO; 30 MG/BID, PO; 40 MG/BID, PO, 80 MG/BID, PO
     Route: 048
     Dates: start: 19980227, end: 19980803
  8. ZERIT [Suspect]
     Indication: HIV INFECTION
     Dosage: 30 MG/BID, PO; 40 MG/BID, PO; 30 MG/BID, PO; 40 MG/BID, PO, 80 MG/BID, PO
     Route: 048
     Dates: start: 19970825, end: 19980227
  9. ZERIT [Suspect]
     Indication: HIV INFECTION
     Dosage: 30 MG/BID, PO; 40 MG/BID, PO; 30 MG/BID, PO; 40 MG/BID, PO, 80 MG/BID, PO
     Route: 048
     Dates: start: 19981109, end: 19990619
  10. ZERIT [Suspect]
     Indication: HIV INFECTION
     Dosage: 30 MG/BID, PO; 40 MG/BID, PO; 30 MG/BID, PO; 40 MG/BID, PO, 80 MG/BID, PO
     Route: 048
     Dates: start: 20001225, end: 20011020
  11. ZERIT [Suspect]
     Indication: HIV INFECTION
     Dosage: 30 MG/BID, PO; 40 MG/BID, PO; 30 MG/BID, PO; 40 MG/BID, PO, 80 MG/BID, PO
     Route: 048
     Dates: start: 19980803, end: 19981109
  12. VIDEX [Suspect]
     Indication: HIV INFECTION
     Dosage: 400 MG/DAILY, PO
     Route: 048
     Dates: start: 20010721, end: 20040514
  13. KALETRA [Suspect]
     Indication: HIV INFECTION
     Dosage: 6 DOSE/DAILY, PO
     Route: 048
     Dates: start: 20001225, end: 20040424
  14. EPIVIR [Suspect]
     Indication: HIV INFECTION
     Dosage: 300 MG/DAILY, PO
     Route: 048
     Dates: start: 20040515, end: 20080919
  15. ZIAGEN [Suspect]
     Indication: HIV INFECTION
     Dosage: 600 MG/DAILY, PO; 600 MG/DAILY, PO
     Route: 048
     Dates: start: 20000724, end: 20000725
  16. ZIAGEN [Suspect]
     Indication: HIV INFECTION
     Dosage: 600 MG/DAILY, PO; 600 MG/DAILY, PO
     Route: 048
     Dates: start: 20011020, end: 20011027
  17. INVIRASE [Suspect]
     Indication: HIV INFECTION
     Dosage: 400 MG/BID, PO; 800 MG/DAILY, PO
     Route: 048
     Dates: start: 20000524, end: 20001224
  18. INVIRASE [Suspect]
     Indication: HIV INFECTION
     Dosage: 400 MG/BID, PO; 800 MG/DAILY, PO
     Route: 048
     Dates: start: 19990619, end: 20000318
  19. NORVIR [Suspect]
     Indication: HIV INFECTION
     Dosage: 400 MG/BID, PO; 800 MG/DAILY, PO; 100 MG/DAILY, PO; 200 MG/DAILY, PO
     Route: 048
     Dates: start: 19991101, end: 20001224
  20. NORVIR [Suspect]
     Indication: HIV INFECTION
     Dosage: 400 MG/BID, PO; 800 MG/DAILY, PO; 100 MG/DAILY, PO; 200 MG/DAILY, PO
     Route: 048
     Dates: start: 20080920
  21. NORVIR [Suspect]
     Indication: HIV INFECTION
     Dosage: 400 MG/BID, PO; 800 MG/DAILY, PO; 100 MG/DAILY, PO; 200 MG/DAILY, PO
     Route: 048
     Dates: start: 20050425, end: 20080919
  22. NORVIR [Suspect]
     Indication: HIV INFECTION
     Dosage: 400 MG/BID, PO; 800 MG/DAILY, PO; 100 MG/DAILY, PO; 200 MG/DAILY, PO
     Route: 048
     Dates: start: 19990619, end: 19991031

REACTIONS (3)
  - DIZZINESS [None]
  - PULMONARY HYPERTENSION [None]
  - PALPITATIONS [None]
